FAERS Safety Report 13338757 (Version 1)
Quarter: 2017Q1

REPORT INFORMATION
  Report Type: Spontaneous
  Country: US (occurrence: US)
  Receive Date: 20170315
  Receipt Date: 20170315
  Transmission Date: 20170428
  Serious: No
  Sender: FDA-Public Use
  Company Number: US-DEPOMED, INC.-US-2016DEP012218

PATIENT

DRUGS (1)
  1. GRALISE [Suspect]
     Active Substance: GABAPENTIN
     Indication: PRODUCT USED FOR UNKNOWN INDICATION
     Dosage: 1800 MG, AT HS
     Route: 048
     Dates: start: 20160215, end: 20160823

REACTIONS (3)
  - Visual impairment [Unknown]
  - Adverse event [Unknown]
  - Dizziness [Unknown]

NARRATIVE: CASE EVENT DATE: 2016
